FAERS Safety Report 4320466-5 (Version None)
Quarter: 2004Q1

REPORT INFORMATION
  Report Type: 
  Country: None (occurrence: None)
  Receive Date: 20040322
  Receipt Date: 20040311
  Transmission Date: 20041129
  Serious: Yes (Other)
  Sender: FDA-Public Use
  Company Number: PHNU2004DE01189

PATIENT
  Age: 54 Year
  Sex: Male

DRUGS (2)
  1. AREDIA [Suspect]
     Indication: MULTIPLE MYELOMA
     Dosage: UNK, QMO
     Dates: end: 20030101
  2. BONDRONAT [Suspect]
     Dosage: 4 MG, QMO
     Route: 042
     Dates: start: 20030101

REACTIONS (2)
  - VISUAL DISTURBANCE [None]
  - VITREOUS OPACITIES [None]
